FAERS Safety Report 24143089 (Version 1)
Quarter: 2024Q3

REPORT INFORMATION
  Report Type: Spontaneous
  Country: ES (occurrence: ES)
  Receive Date: 20240726
  Receipt Date: 20240726
  Transmission Date: 20241017
  Serious: Yes (Other)
  Sender: TEVA
  Company Number: None

PATIENT
  Age: 32 Year
  Sex: Female

DRUGS (1)
  1. AJOVY [Suspect]
     Active Substance: FREMANEZUMAB-VFRM
     Indication: Migraine
     Route: 058
     Dates: start: 20240325

REACTIONS (3)
  - Injection site oedema [Recovering/Resolving]
  - Administration site erythema [Recovering/Resolving]
  - Administration site pruritus [Recovering/Resolving]

NARRATIVE: CASE EVENT DATE: 20240424
